FAERS Safety Report 9132966 (Version 3)
Quarter: 2013Q2

REPORT INFORMATION
  Report Type: Report from Study
  Country: CA (occurrence: CA)
  Receive Date: 20130301
  Receipt Date: 20130509
  Transmission Date: 20140414
  Serious: Yes (Hospitalization)
  Sender: FDA-Public Use
  Company Number: CA-BRISTOL-MYERS SQUIBB COMPANY-16855934

PATIENT
  Age: 62 Year
  Sex: Female

DRUGS (13)
  1. IPILIMUMAB [Suspect]
     Indication: METASTATIC MALIGNANT MELANOMA
     Route: 042
     Dates: start: 20120621
  2. DALTEPARIN [Suspect]
  3. CITALOPRAM [Concomitant]
     Dates: start: 201107
  4. CALCIUM [Concomitant]
     Dates: start: 201202
  5. OMEGA-3 [Concomitant]
     Dosage: FORMULATION-OMEGA 3-6-9
     Dates: start: 201107
  6. VITAMIN C [Concomitant]
     Dates: start: 201107
  7. VITAMIN E [Concomitant]
     Dates: start: 201107
  8. VITAMIN D [Concomitant]
     Dates: start: 201107
  9. MULTIVITAMIN [Concomitant]
     Dates: start: 201107
  10. BENADRYL [Concomitant]
     Dates: start: 20120701
  11. HYDROCORTISONE CREAM [Concomitant]
     Dates: start: 20120701
  12. TYLENOL [Concomitant]
     Dates: start: 20120713
  13. IBUPROFEN [Concomitant]
     Dates: start: 20120730

REACTIONS (3)
  - Pulmonary embolism [Recovered/Resolved]
  - Hyponatraemia [Recovered/Resolved]
  - Retroperitoneal haematoma [Recovered/Resolved with Sequelae]
